FAERS Safety Report 6010099-7 (Version None)
Quarter: 2008Q4

REPORT INFORMATION
  Report Type: 
  Country: None (occurrence: None)
  Receive Date: 20081218
  Receipt Date: 20081013
  Transmission Date: 20090506
  Serious: No
  Sender: FDA-Public Use
  Company Number: US-KINGPHARMUSA00001-K200801189

PATIENT
  Sex: Female
  Weight: 50.794 kg

DRUGS (4)
  1. ALTACE [Suspect]
     Indication: HYPERTENSION
     Dosage: 10 MG, QD
     Route: 048
     Dates: start: 20070101
  2. ALTACE [Suspect]
     Dosage: 2.5 MG, QD
     Route: 048
     Dates: start: 20070101
  3. ALTACE [Suspect]
     Dosage: 5 MG, QD
     Route: 048
     Dates: start: 20070101
  4. LIPITOR [Concomitant]
     Indication: BLOOD CHOLESTEROL
     Dosage: 10 MG, PRN

REACTIONS (6)
  - ANOREXIA [None]
  - ARTHRALGIA [None]
  - FEELING ABNORMAL [None]
  - JAW DISORDER [None]
  - TOOTH LOSS [None]
  - WEIGHT DECREASED [None]
